FAERS Safety Report 7944543-2 (Version None)
Quarter: 2011Q4

REPORT INFORMATION
  Report Type: 
  Country: None (occurrence: None)
  Receive Date: 20111114
  Receipt Date: 20110805
  Transmission Date: 20120403
  Serious: No
  Sender: FDA-Public Use
  Company Number: 1000022699

PATIENT
  Age: 60 Year
  Sex: Female

DRUGS (3)
  1. SAVELLA [Suspect]
     Indication: FIBROMYALGIA
     Dosage: 12.5 MG (12.5 MG, 1 IN 1 D), ORAL
     Route: 048
     Dates: start: 20110803, end: 20110803
  2. RESTORIL (TEMAZEPAM) (TEMAZEPAM) [Concomitant]
  3. ZOMIG (ZOLMITRIPTAN) (ZOLMITRIPTAN) [Concomitant]

REACTIONS (5)
  - ASTHENIA [None]
  - FEELING JITTERY [None]
  - PARAESTHESIA [None]
  - PRURITUS [None]
  - TREMOR [None]
